FAERS Safety Report 5103978-6 (Version None)
Quarter: 2006Q3

REPORT INFORMATION
  Report Type: 
  Country: None (occurrence: None)
  Receive Date: 20060908
  Receipt Date: 20060829
  Transmission Date: 20061208
  Serious: Yes (Hospitalization)
  Sender: FDA-Public Use
  Company Number: TPA2006A01434

PATIENT
  Sex: Female

DRUGS (2)
  1. ROZEREM (RAMELETEON) (8 MILLIGRAM, TABLETS) [Suspect]
     Dosage: 8 MG, PER ORAL
     Route: 048
  2. OTHER UNKNOWN MEDICATION (ALL OTHER THERAPEUTIC PRODUCTS) [Concomitant]

REACTIONS (2)
  - INCORRECT DOSE ADMINISTERED [None]
  - INTENTIONAL DRUG MISUSE [None]
